FAERS Safety Report 19457635 (Version 1)
Quarter: 2021Q2

REPORT INFORMATION
  Report Type: Spontaneous
  Country: US (occurrence: US)
  Receive Date: 20210624
  Receipt Date: 20210624
  Transmission Date: 20210717
  Serious: No
  Sender: FDA-Public Use
  Company Number: US-PFIZER INC-2021673723

PATIENT
  Age: 31 Year
  Sex: Female
  Weight: 88 kg

DRUGS (1)
  1. PRISTIQ EXTENDED?RELEASE [Suspect]
     Active Substance: DESVENLAFAXINE SUCCINATE
     Indication: POST-TRAUMATIC STRESS DISORDER
     Dosage: UNK
     Dates: end: 2021

REACTIONS (5)
  - Hyperhidrosis [Recovered/Resolved]
  - Nightmare [Recovered/Resolved]
  - Withdrawal syndrome [Recovered/Resolved]
  - Product use in unapproved indication [Unknown]
  - Emotional distress [Unknown]

NARRATIVE: CASE EVENT DATE: 202105
